FAERS Safety Report 23736298 (Version 3)
Quarter: 2024Q2

REPORT INFORMATION
  Report Type: Report from Study
  Country: US (occurrence: US)
  Receive Date: 20240412
  Receipt Date: 20240627
  Transmission Date: 20240716
  Serious: Yes (Hospitalization, Disabling, Other)
  Sender: FDA-Public Use
  Company Number: US-ROCHE-3541771

PATIENT
  Age: 68 Year
  Sex: Female
  Weight: 63.5 kg

DRUGS (6)
  1. XOLAIR [Suspect]
     Active Substance: OMALIZUMAB
     Indication: Asthma
     Dosage: INJECT 300MG SUBCUTANEOUSLY ONCE EVERY 4 WEEK
     Route: 058
  2. XOLAIR [Suspect]
     Active Substance: OMALIZUMAB
     Dosage: 2 SHOTS
     Route: 058
     Dates: start: 202305
  3. OZEMPIC [Concomitant]
     Active Substance: SEMAGLUTIDE
     Dosage: EITHER 50MG OR 0.5 MG; PATIENT UNSURE
  4. METFORMIN [Concomitant]
     Active Substance: METFORMIN HYDROCHLORIDE
  5. ZYPREXA [Concomitant]
     Active Substance: OLANZAPINE
  6. EFFEXOR [Concomitant]
     Active Substance: VENLAFAXINE HYDROCHLORIDE

REACTIONS (12)
  - Weight decreased [Unknown]
  - Asthenia [Recovering/Resolving]
  - Fall [Unknown]
  - Head injury [Unknown]
  - Concussion [Unknown]
  - Cerebral haemorrhage [Unknown]
  - Sepsis [Recovered/Resolved]
  - Amnesia [Not Recovered/Not Resolved]
  - Gait inability [Recovering/Resolving]
  - Confusional state [Not Recovered/Not Resolved]
  - Blood glucose decreased [Unknown]
  - Renal failure [Unknown]

NARRATIVE: CASE EVENT DATE: 20240401
